FAERS Safety Report 6681230-5 (Version None)
Quarter: 2010Q2

REPORT INFORMATION
  Report Type: 
  Country: None (occurrence: None)
  Receive Date: 20100414
  Receipt Date: 20090320
  Transmission Date: 20101027
  Serious: No
  Sender: FDA-Public Use
  Company Number: US-KINGPHARMUSA00001-K200900322

PATIENT
  Sex: Female

DRUGS (10)
  1. SKELAXIN [Suspect]
     Indication: MYALGIA
     Dosage: 400 MG, QHS
     Route: 048
     Dates: start: 20090319
  2. SKELAXIN [Suspect]
     Indication: ARTHRALGIA
  3. PLAQUENIL [Concomitant]
     Dosage: UNK
  4. RESTASIS [Concomitant]
     Dosage: UNK
  5. KLONOPIN [Concomitant]
     Dosage: UNK
  6. LOVAZA [Concomitant]
     Dosage: UNK
  7. MULTIVITAMIN                       /00831701/ [Concomitant]
     Dosage: UNK
  8. PRILOSEC [Concomitant]
     Dosage: UNK
  9. NORVASC [Concomitant]
     Dosage: UNK
  10. SALAGEN [Concomitant]
     Dosage: UNK

REACTIONS (5)
  - ABDOMINAL DISTENSION [None]
  - ABDOMINAL PAIN UPPER [None]
  - DYSPEPSIA [None]
  - ERUCTATION [None]
  - REFLUX GASTRITIS [None]
